FAERS Safety Report 25408470 (Version 2)
Quarter: 2025Q3

REPORT INFORMATION
  Report Type: Spontaneous
  Country: US (occurrence: US)
  Receive Date: 20250606
  Receipt Date: 20250826
  Transmission Date: 20251020
  Serious: No
  Sender: ASCENDIS PHARMA
  Company Number: US-ASCENDIS PHARMA-2025US009261

PATIENT

DRUGS (3)
  1. YORVIPATH [Suspect]
     Active Substance: PALOPEGTERIPARATIDE
     Indication: Hypoparathyroidism
     Route: 065
  2. ATIVAN [Concomitant]
     Active Substance: LORAZEPAM
     Indication: Anxiety
     Route: 065
  3. LORAZEPAM [Concomitant]
     Active Substance: LORAZEPAM
     Indication: Anxiety
     Route: 065

REACTIONS (2)
  - Product dose omission issue [Unknown]
  - Intentional device use issue [Unknown]

NARRATIVE: CASE EVENT DATE: 20250401
